FAERS Safety Report 12969710 (Version 3)
Quarter: 2017Q2

REPORT INFORMATION
  Report Type: Spontaneous
  Country: US (occurrence: US)
  Receive Date: 20161123
  Receipt Date: 20170424
  Transmission Date: 20170830
  Serious: Yes (Hospitalization, Disabling, Other)
  Sender: FDA-Public Use
  Company Number: US-ELI_LILLY_AND_COMPANY-US201611005413

PATIENT
  Sex: Male

DRUGS (2)
  1. LANTUS [Concomitant]
     Active Substance: INSULIN GLARGINE
  2. HUMALOG [Suspect]
     Active Substance: INSULIN LISPRO
     Indication: TYPE 1 DIABETES MELLITUS
     Dosage: 12 U, OTHER
     Route: 065
     Dates: start: 2000, end: 2014

REACTIONS (8)
  - Diabetes mellitus inadequate control [Unknown]
  - Renal disorder [Unknown]
  - Spinal deformity [Unknown]
  - Incorrect dose administered [Unknown]
  - Blood glucose decreased [Unknown]
  - Hypersensitivity [Unknown]
  - Gangrene [Recovered/Resolved]
  - Knee deformity [Unknown]

NARRATIVE: CASE EVENT DATE: 2014
